FAERS Safety Report 15194924 (Version 1)
Quarter: 2018Q3

REPORT INFORMATION
  Report Type: Spontaneous
  Country: US (occurrence: US)
  Receive Date: 20180725
  Receipt Date: 20180725
  Transmission Date: 20181010
  Serious: No
  Sender: FDA-Public Use
  Company Number: US-GALDERMA-US18018294

PATIENT
  Age: 56 Year
  Sex: Female

DRUGS (4)
  1. PROACTIV MARK CORRECTING PADS [Concomitant]
     Indication: SEBORRHOEA
     Route: 061
     Dates: start: 20180110, end: 20180326
  2. PROACTIV MD ADAPALENE ACNE TREATMENT [Suspect]
     Active Substance: ADAPALENE
     Indication: SEBORRHOEA
     Dosage: 0.1%
     Route: 061
     Dates: start: 20180110, end: 20180326
  3. PROACTIV MD DEEP CLEANSING FACE WASH [Concomitant]
     Active Substance: COSMETICS
     Indication: SEBORRHOEA
     Route: 061
     Dates: start: 20180110, end: 20180326
  4. PROACTIV MAKEUP CLEANSING WIPES [Concomitant]
     Indication: SEBORRHOEA
     Route: 061
     Dates: start: 20180110, end: 20180326

REACTIONS (4)
  - Erythema [Recovering/Resolving]
  - Skin irritation [Recovering/Resolving]
  - Dermatitis [Recovering/Resolving]
  - Product use in unapproved indication [Recovered/Resolved]

NARRATIVE: CASE EVENT DATE: 20180110
